FAERS Safety Report 4933391-3 (Version None)
Quarter: 2006Q1

REPORT INFORMATION
  Report Type: 
  Country: None (occurrence: None)
  Receive Date: 20060111
  Receipt Date: 20050302
  Transmission Date: 20060701
  Serious: Yes (Hospitalization)
  Sender: FDA-Public Use
  Company Number: A001-002-006412

PATIENT
  Age: 70 Year
  Sex: Female

DRUGS (6)
  1. ARICEPT [Suspect]
     Indication: DEMENTIA ALZHEIMER'S TYPE
     Dosage: 5 MG, 1 IN 1 D, ORAL ; 10 MG, 1 IN 1 D, ORAL
     Route: 048
     Dates: start: 20010601, end: 20010701
  2. ARICEPT [Suspect]
     Indication: DEMENTIA ALZHEIMER'S TYPE
     Dosage: 5 MG, 1 IN 1 D, ORAL ; 10 MG, 1 IN 1 D, ORAL
     Route: 048
     Dates: start: 20010701, end: 20040401
  3. VERAPAMIL [Concomitant]
  4. ASPIRIN [Concomitant]
  5. DOCUSATE (DOCUSATE) [Concomitant]
  6. ZOLOFT [Concomitant]

REACTIONS (1)
  - ATRIOVENTRICULAR BLOCK [None]
